FAERS Safety Report 7194412-3 (Version None)
Quarter: 2010Q4

REPORT INFORMATION
  Report Type: 
  Country: None (occurrence: None)
  Receive Date: 20101223
  Receipt Date: 20101214
  Transmission Date: 20110411
  Serious: Yes (Other)
  Sender: FDA-Public Use
  Company Number: DE-GENENTECH-302468

PATIENT
  Age: 86 Year
  Sex: Female

DRUGS (5)
  1. LUCENTIS [Suspect]
     Indication: MACULAR DEGENERATION
     Dosage: UNK
     Route: 031
     Dates: start: 20070801
  2. LUCENTIS [Suspect]
     Dosage: UNK
     Route: 031
     Dates: start: 20071001
  3. LUCENTIS [Suspect]
     Dosage: UNK
     Route: 031
     Dates: start: 20080401
  4. LUCENTIS [Suspect]
     Route: 031
  5. LUCENTIS [Suspect]
     Dosage: UNK
     Route: 031
     Dates: start: 20080701

REACTIONS (2)
  - RETINAL PIGMENTATION [None]
  - VISUAL ACUITY REDUCED [None]
